FAERS Safety Report 18728444 (Version 2)
Quarter: 2021Q1

REPORT INFORMATION
  Report Type: Spontaneous
  Country: JP (occurrence: JP)
  Receive Date: 20210111
  Receipt Date: 20210120
  Transmission Date: 20210419
  Serious: Yes (Other)
  Sender: FDA-Public Use
  Company Number: JP-CELLTRION INC.-2021JP000052

PATIENT

DRUGS (1)
  1. TRASTUZUMAB BS FOR I.V. INFUSION [NK] [Suspect]
     Active Substance: TRASTUZUMAB
     Indication: PRODUCT USED FOR UNKNOWN INDICATION
     Route: 065

REACTIONS (2)
  - Glaucoma [Not Recovered/Not Resolved]
  - Intraocular pressure increased [Not Recovered/Not Resolved]
